FAERS Safety Report 5777200-1 (Version None)
Quarter: 2008Q2

REPORT INFORMATION
  Report Type: 
  Country: None (occurrence: None)
  Receive Date: 20080618
  Receipt Date: 20080606
  Transmission Date: 20081010
  Serious: Yes (Hospitalization, Other)
  Sender: FDA-Public Use
  Company Number: US-ELI_LILLY_AND_COMPANY-US200805002867

PATIENT
  Age: 72 Year
  Sex: Male

DRUGS (2)
  1. HUMALOG [Suspect]
     Dosage: UNK, AS NEEDED
  2. LANTUS [Concomitant]
     Dosage: 30 U, EACH MORNING

REACTIONS (5)
  - BLOOD GLUCOSE DECREASED [None]
  - COLON CANCER [None]
  - HYPOGLYCAEMIA [None]
  - LOSS OF CONSCIOUSNESS [None]
  - PANCREATIC DISORDER [None]
